FAERS Safety Report 23048403 (Version 1)
Quarter: 2023Q4

REPORT INFORMATION
  Report Type: Spontaneous
  Country: US (occurrence: US)
  Receive Date: 20231010
  Receipt Date: 20231010
  Transmission Date: 20240110
  Serious: Yes (Other)
  Sender: FDA-Public Use
  Company Number: US-AUROBINDO-AUR-APL-2023-062402

PATIENT
  Age: 71 Year
  Sex: Female

DRUGS (1)
  1. SODIUM NITROPRUSSIDE [Suspect]
     Active Substance: SODIUM NITROPRUSSIDE
     Indication: Cardiogenic shock
     Dosage: 0.25 ?G/KG/MINUTES TO 3 ?G/KG/MIN FOR 8 DAYS
     Route: 065

REACTIONS (1)
  - Toxicity to various agents [Unknown]
